FAERS Safety Report 16910274 (Version 2)
Quarter: 2019Q4

REPORT INFORMATION
  Report Type: Spontaneous
  Country: US (occurrence: US)
  Receive Date: 20191011
  Receipt Date: 20191113
  Transmission Date: 20200122
  Serious: Yes (Other)
  Sender: FDA-Public Use
  Company Number: US-GE HEALTHCARE LIFE SCIENCES-2019CSU005142

PATIENT
  Age: 76 Year
  Sex: Female
  Weight: 63 kg

DRUGS (2)
  1. OMNIPAQUE [Suspect]
     Active Substance: IOHEXOL
     Indication: HYPERPARATHYROIDISM
  2. OMNIPAQUE [Suspect]
     Active Substance: IOHEXOL
     Indication: SCAN PARATHYROID
     Dosage: 97 ML, SINGLE
     Route: 042
     Dates: start: 20190906, end: 20190906

REACTIONS (4)
  - Tongue pruritus [Recovered/Resolved]
  - Eye swelling [Recovered/Resolved]
  - Pruritus [Recovered/Resolved]
  - Urticaria [Recovered/Resolved]

NARRATIVE: CASE EVENT DATE: 20190906
